FAERS Safety Report 9757894 (Version 1)
Quarter: 2013Q4

REPORT INFORMATION
  Report Type: Spontaneous
  Country: SE (occurrence: SE)
  Receive Date: 20131216
  Receipt Date: 20131216
  Transmission Date: 20140711
  Serious: Yes (Death, Hospitalization)
  Sender: FDA-Public Use
  Company Number: SE-JNJFOC-20131204517

PATIENT
  Age: 74 Year
  Sex: Female

DRUGS (15)
  1. XEPLION [Suspect]
     Indication: SCHIZOPHRENIA, PARANOID TYPE
     Route: 030
     Dates: start: 20111115, end: 20131002
  2. TROMBYL [Concomitant]
     Route: 048
     Dates: start: 20130723
  3. ENALAPRIL SANDOZ [Concomitant]
     Route: 048
     Dates: start: 20130723
  4. ATORVASTATIN CALCIUM [Concomitant]
     Route: 048
     Dates: start: 20130723
  5. TOLTERODINE [Concomitant]
     Route: 048
     Dates: start: 20130723
  6. PRAMIPEXOLE HYDROCHLORIDE HYDRATE [Concomitant]
     Route: 048
     Dates: start: 20130723
  7. CHOLECALCIFEROL [Concomitant]
     Route: 048
     Dates: start: 20130703
  8. FLUTIVATE [Concomitant]
     Route: 065
     Dates: start: 20130815
  9. VAGIFEM [Concomitant]
     Route: 048
     Dates: start: 20130815
  10. PILOKARPIN [Concomitant]
     Route: 065
     Dates: start: 20120807
  11. LUMIGAN [Concomitant]
     Dosage: 0.3 MG/ML
     Route: 065
     Dates: start: 20120807
  12. CANODERM [Concomitant]
     Dosage: AS NECESSARY
     Route: 065
     Dates: start: 20130527
  13. PAMOL [Concomitant]
     Dosage: AS NECESSARY, 1-2 TO 1-4 VID BEHOV (SIC)
     Route: 048
     Dates: start: 20130711
  14. ATARAX [Concomitant]
     Dosage: AS NECESSARY
     Route: 048
     Dates: start: 20130222
  15. AERIUS [Concomitant]
     Route: 048
     Dates: start: 20130424

REACTIONS (1)
  - Thrombotic cerebral infarction [Fatal]
